FAERS Safety Report 4595868-2 (Version None)
Quarter: 2005Q1

REPORT INFORMATION
  Report Type: 
  Country: None (occurrence: None)
  Receive Date: 20050302
  Receipt Date: 20041008
  Transmission Date: 20050727
  Serious: Yes (Death, Hospitalization)
  Sender: FDA-Public Use
  Company Number: 200413161JP

PATIENT
  Age: 81 Year
  Sex: Male

DRUGS (10)
  1. LASIX [Suspect]
     Indication: CARDIAC FAILURE CONGESTIVE
     Route: 041
     Dates: start: 20040920, end: 20041006
  2. FESIN [Suspect]
     Indication: ANAEMIA
     Dosage: DOSE: 1VIAL
     Route: 041
     Dates: start: 20040917, end: 20041006
  3. SOLDACTONE [Suspect]
     Indication: CARDIAC FAILURE CONGESTIVE
     Dosage: DOSE: 1AMPLE
     Route: 041
     Dates: start: 20040920, end: 20041006
  4. NITRODERM [Concomitant]
     Indication: CARDIAC FAILURE CONGESTIVE
     Dosage: DOSE: 2SHEETS
     Dates: start: 20040810, end: 20041011
  5. GASTER [Concomitant]
     Indication: GASTRITIS
     Route: 048
     Dates: start: 20040816, end: 20041011
  6. HOKUNALIN [Concomitant]
     Indication: ASTHMA
     Dates: start: 20040907, end: 20041011
  7. VEEN D [Concomitant]
     Indication: ASTHMA
     Route: 041
     Dates: start: 20040913, end: 20041012
  8. SOLDEM [Concomitant]
     Indication: ASTHMA
     Route: 041
     Dates: start: 20040913, end: 20041012
  9. VITAMEDIN CAPSULE [Concomitant]
     Indication: ASTHMA
     Dosage: DOSE: 2VIAL
     Route: 041
     Dates: start: 20040913, end: 20041002
  10. NITRODERM [Concomitant]
     Indication: CARDIAC FAILURE CONGESTIVE
     Route: 003
     Dates: start: 20040801

REACTIONS (6)
  - BLOOD CULTURE POSITIVE [None]
  - DISSEMINATED INTRAVASCULAR COAGULATION [None]
  - INFECTION [None]
  - JAUNDICE [None]
  - LIVER DISORDER [None]
  - SEPSIS [None]
